FAERS Safety Report 7088192-X (Version None)
Quarter: 2010Q4

REPORT INFORMATION
  Report Type: 
  Country: None (occurrence: None)
  Receive Date: 20101028
  Receipt Date: 20101015
  Transmission Date: 20110411
  Serious: Yes (Other)
  Sender: FDA-Public Use
  Company Number: 2010AP002166

PATIENT
  Age: 84 Year
  Sex: Male

DRUGS (7)
  1. ALLOPURINOL [Suspect]
     Dosage: 300 MG;, 75 MG; QD;
  2. ACETYLSALICYLIC ACID [Concomitant]
  3. HYDROCHLOROTHIAZIDE [Concomitant]
  4. FUROSEMIDE [Concomitant]
  5. TIMOLOL MALEATE [Concomitant]
  6. TRAVOPROST [Concomitant]
  7. LOSARTAN [Concomitant]

REACTIONS (3)
  - INTERSTITIAL GRANULOMATOUS DERMATITIS [None]
  - MYCOSIS FUNGOIDES [None]
  - PSEUDOLYMPHOMA [None]
